FAERS Safety Report 9847086 (Version 2)
Quarter: 2014Q1

REPORT INFORMATION
  Report Type: Spontaneous
  Country: NL (occurrence: NL)
  Receive Date: 20140127
  Receipt Date: 20140211
  Transmission Date: 20141002
  Serious: Yes (Other)
  Sender: FDA-Public Use
  Company Number: NL-PFIZER INC-2014023570

PATIENT
  Age: 71 Year
  Sex: Female

DRUGS (4)
  1. ATORVASTATINE PFIZER [Suspect]
     Indication: HYPERCHOLESTEROLAEMIA
     Dosage: 10 MG, UNK
     Route: 048
     Dates: start: 20121101, end: 20121113
  2. NIFEDIPINE [Concomitant]
     Indication: HYPERTENSION
     Dosage: 60 MG, UNK
     Route: 048
  3. COAPROVEL [Concomitant]
     Indication: HYPERTENSION
     Dosage: [HYDROCHLOROTHIAZIDE 150]/ [IRBESARTAN 12.5]
     Route: 048
  4. BETASERC [Concomitant]
     Indication: VERTIGO
     Dosage: 16 MG, UNK
     Route: 048

REACTIONS (1)
  - Meniere^s disease [Recovered/Resolved]
